FAERS Safety Report 23978212 (Version 3)
Quarter: 2024Q3

REPORT INFORMATION
  Report Type: Spontaneous
  Country: US (occurrence: US)
  Receive Date: 20240614
  Receipt Date: 20240711
  Transmission Date: 20241016
  Serious: No
  Sender: HETERO
  Company Number: US-HETERO-HET2024US01752

PATIENT
  Age: 56 Year
  Sex: Female
  Weight: 172 kg

DRUGS (1)
  1. HYDRALAZINE [Suspect]
     Active Substance: HYDRALAZINE HYDROCHLORIDE
     Indication: Hypertension
     Dosage: 100 MILLIGRAM, TWICE A DAY
     Route: 048
     Dates: start: 20240604, end: 20240604

REACTIONS (5)
  - Erythema [Recovered/Resolved]
  - Pain in jaw [Recovered/Resolved]
  - Tongue disorder [Recovered/Resolved]
  - Blood pressure decreased [Recovered/Resolved]
  - Dizziness [Recovered/Resolved]

NARRATIVE: CASE EVENT DATE: 20240604
